FAERS Safety Report 5241412-6 (Version None)
Quarter: 2007Q1

REPORT INFORMATION
  Report Type: 
  Country: None (occurrence: None)
  Receive Date: 20070212
  Receipt Date: 20070212
  Transmission Date: 20070707
  Serious: No
  Sender: FDA-Public Use
  Company Number: None

PATIENT

DRUGS (1)
  1. LYRICA [Suspect]
     Dates: start: 20070109, end: 20070131

REACTIONS (4)
  - ABNORMAL SENSATION IN EYE [None]
  - SOMNOLENCE [None]
  - STRABISMUS [None]
  - VISION BLURRED [None]
